FAERS Safety Report 13917101 (Version 1)
Quarter: 2017Q3

REPORT INFORMATION
  Report Type: Spontaneous
  Country: US (occurrence: None)
  Receive Date: 20170827
  Receipt Date: 20170827
  Transmission Date: 20171127
  Serious: No
  Sender: FDA-Public Use
  Company Number: None

PATIENT
  Sex: Female

DRUGS (1)
  1. BOTOX [Suspect]
     Active Substance: ONABOTULINUMTOXINA
     Indication: MIGRAINE
     Dosage: 200 UNITS EVERY 12 WEEKS IM
     Route: 030
     Dates: start: 201703, end: 201703

REACTIONS (3)
  - Headache [None]
  - Movement disorder [None]
  - Injection site pain [None]
